FAERS Safety Report 5889167-6 (Version None)
Quarter: 2008Q3

REPORT INFORMATION
  Report Type: 
  Country: None (occurrence: None)
  Receive Date: 20080919
  Receipt Date: 20080910
  Transmission Date: 20090109
  Serious: Yes (Other)
  Sender: FDA-Public Use
  Company Number: US-JNJFOC-20080400682

PATIENT
  Sex: Female
  Weight: 49.9 kg

DRUGS (5)
  1. FENTANYL TRANSDERMAL SYSTEM [Suspect]
     Indication: INTERVERTEBRAL DISC PROTRUSION
     Route: 062
  2. FENTANYL TRANSDERMAL SYSTEM [Suspect]
     Indication: INTERVERTEBRAL DISC PROTRUSION
     Route: 062
  3. NORVASC [Concomitant]
     Indication: HYPERTENSION
     Route: 048
  4. PREMARIN [Concomitant]
     Route: 048
  5. ALLEGRA [Concomitant]
     Indication: SINUS DISORDER
     Route: 048

REACTIONS (5)
  - APPLICATION SITE RASH [None]
  - DERMATITIS CONTACT [None]
  - DRUG INEFFECTIVE [None]
  - INCORRECT DRUG ADMINISTRATION DURATION [None]
  - RESTLESS LEGS SYNDROME [None]
